FAERS Safety Report 7669221-9 (Version None)
Quarter: 2011Q3

REPORT INFORMATION
  Report Type: 
  Country: None (occurrence: None)
  Receive Date: 20110808
  Receipt Date: 20110727
  Transmission Date: 20111222
  Serious: Yes (Hospitalization)
  Sender: FDA-Public Use
  Company Number: PHHY2011JP55862

PATIENT
  Sex: Female
  Weight: 77 kg

DRUGS (11)
  1. BISACODYL [Suspect]
     Indication: CONSTIPATION
     Dosage: UNK UKN, UNK
     Dates: start: 20100326, end: 20100326
  2. ZOLOFT [Suspect]
     Indication: DEPRESSION
     Dosage: 50 MG, DAILY
     Route: 048
     Dates: start: 20100310
  3. ORADOL [Suspect]
     Indication: PHARYNGITIS
     Dosage: UNK UKN, UNK
     Dates: start: 20100311, end: 20100311
  4. SENNOSIDE [Concomitant]
     Indication: CONSTIPATION
     Dosage: UNK UKN, UNK
     Dates: start: 20100326, end: 20100326
  5. RISPERIDONE [Suspect]
     Indication: INSOMNIA
     Dosage: UNK UKN, UNK
     Route: 048
     Dates: start: 20100312, end: 20100312
  6. ROHYPNOL [Suspect]
     Indication: INSOMNIA
     Dosage: 2 MG, DAILY
     Route: 048
     Dates: start: 20100310
  7. CLARITHROMYCIN [Suspect]
     Indication: PHARYNGITIS
     Dosage: 400 MG, DAILY
     Route: 048
     Dates: start: 20100329, end: 20100329
  8. NICHOLASE [Suspect]
     Indication: PHARYNGITIS
     Dosage: 30 MG, DAILY
     Route: 048
     Dates: start: 20100329, end: 20100331
  9. TEGRETOL [Suspect]
     Indication: MANIA
     Dosage: 300 MG, DAILY (100 MG THREE TIMES DAILY)
     Route: 048
     Dates: start: 20100315, end: 20100329
  10. NICHOLASE [Suspect]
     Indication: UPPER RESPIRATORY TRACT INFLAMMATION
     Dosage: 30 MG, DAILY
     Route: 048
     Dates: start: 20100311, end: 20100315
  11. CLARITHROMYCIN [Suspect]
     Indication: UPPER RESPIRATORY TRACT INFLAMMATION
     Dosage: 400 MG, DAILY
     Route: 048
     Dates: start: 20100311, end: 20100315

REACTIONS (10)
  - LIVER DISORDER [None]
  - HEADACHE [None]
  - ASPARTATE AMINOTRANSFERASE INCREASED [None]
  - C-REACTIVE PROTEIN INCREASED [None]
  - ALANINE AMINOTRANSFERASE INCREASED [None]
  - WHITE BLOOD CELL COUNT DECREASED [None]
  - URINARY TRACT INFECTION [None]
  - SPLENOMEGALY [None]
  - PYREXIA [None]
  - HYPERTHERMIA [None]
